FAERS Safety Report 6021013-2 (Version None)
Quarter: 2008Q4

REPORT INFORMATION
  Report Type: 
  Country: None (occurrence: None)
  Receive Date: 20081229
  Receipt Date: 20081222
  Transmission Date: 20090506
  Serious: Yes (Other)
  Sender: FDA-Public Use
  Company Number: US-KINGPHARMUSA00001-K200801448

PATIENT
  Sex: Female
  Weight: 81.179 kg

DRUGS (4)
  1. LEVOXYL [Suspect]
     Indication: HYPOTHYROIDISM
     Dosage: 125 MCG 2 DAYS A WEEK AND 1/2 OF 125 MCG TABLET 5 DAYS A WEEK
     Route: 048
  2. CYTOMEL [Concomitant]
     Dosage: 5 MG, QD
     Route: 048
  3. ASPIRIN [Concomitant]
     Dosage: UNK
     Route: 048
  4. METFORMIN [Concomitant]
     Indication: BLOOD TESTOSTERONE INCREASED
     Dosage: UNK

REACTIONS (4)
  - ABORTION SPONTANEOUS [None]
  - ANTIPHOSPHOLIPID ANTIBODIES POSITIVE [None]
  - DEPRESSION [None]
  - THYROID DISORDER [None]
